FAERS Safety Report 9893074 (Version 1)
Quarter: 2014Q1

REPORT INFORMATION
  Report Type: Report from Study
  Country: US (occurrence: US)
  Receive Date: 20140213
  Receipt Date: 20140213
  Transmission Date: 20141002
  Serious: Yes (Other)
  Sender: FDA-Public Use
  Company Number: US-ROCHE-1345411

PATIENT
  Age: 40 Year
  Sex: Male
  Weight: 105.86 kg

DRUGS (7)
  1. NUTROPIN AQ [Suspect]
     Indication: GROWTH HORMONE DEFICIENCY
     Route: 058
  2. NUTROPIN AQ [Suspect]
     Route: 058
  3. SUDAFED [Concomitant]
     Route: 048
  4. HYDROCHLOROTHIAZIDE [Concomitant]
     Route: 048
  5. CRESTOR [Concomitant]
     Route: 048
  6. METFORMIN [Concomitant]
     Route: 048
  7. ALEVE [Concomitant]

REACTIONS (10)
  - Feeling cold [Unknown]
  - Asthenia [Unknown]
  - Dizziness [Unknown]
  - Weight fluctuation [Unknown]
  - Sleep disorder [Unknown]
  - Snoring [Unknown]
  - Headache [Unknown]
  - Local swelling [Unknown]
  - Arthralgia [Unknown]
  - Exostosis [Unknown]
